FAERS Safety Report 10620380 (Version 1)
Quarter: 2014Q4

REPORT INFORMATION
  Report Type: Spontaneous
  Country: US (occurrence: US)
  Receive Date: 20141202
  Receipt Date: 20141202
  Transmission Date: 20150529
  Serious: No
  Sender: FDA-Public Use
  Company Number: US-TEVA-524617USA

PATIENT
  Sex: Male
  Weight: 98.97 kg

DRUGS (2)
  1. LISINOPRIL. [Concomitant]
     Active Substance: LISINOPRIL
     Indication: HYPERTENSION
  2. AMRIX [Suspect]
     Active Substance: CYCLOBENZAPRINE HYDROCHLORIDE
     Indication: BLADDER DISORDER
     Dates: start: 20141106

REACTIONS (2)
  - Erectile dysfunction [Not Recovered/Not Resolved]
  - Intentional product use issue [Unknown]
